FAERS Safety Report 4274721-8 (Version None)
Quarter: 2004Q1

REPORT INFORMATION
  Report Type: 
  Country: None (occurrence: None)
  Receive Date: 20040120
  Receipt Date: 20040120
  Transmission Date: 20041129
  Serious: Yes (Disabling)
  Sender: FDA-Public Use
  Company Number: None

PATIENT
  Age: 85 Year
  Sex: Female
  Weight: 76 kg

DRUGS (8)
  1. KETOROLAC [Suspect]
     Dosage: 30 MG X 1 LOADING IV
     Route: 042
     Dates: start: 20020326, end: 20020326
  2. KETOROLAC [Suspect]
     Dosage: 15 MG Q 6 HOURS X IV
     Route: 042
     Dates: start: 20020326, end: 20020329
  3. IBUPROFEN [Concomitant]
  4. TYLENOL PM [Concomitant]
  5. GLUCOSAMINE [Concomitant]
  6. DITROPAN [Concomitant]
  7. MULTIPLE VITAMIN [Concomitant]
  8. ATENOLOL [Concomitant]

REACTIONS (5)
  - BLOOD ERYTHROPOIETIN DECREASED [None]
  - DIALYSIS [None]
  - NEPHRITIS INTERSTITIAL [None]
  - RENAL FAILURE ACUTE [None]
  - RENAL FAILURE CHRONIC [None]
